FAERS Safety Report 6331299-2 (Version None)
Quarter: 2009Q3

REPORT INFORMATION
  Report Type: 
  Country: None (occurrence: None)
  Receive Date: 20090827
  Receipt Date: 20090821
  Transmission Date: 20100115
  Serious: Yes (Hospitalization)
  Sender: FDA-Public Use
  Company Number: US-B.I. PHARMACEUTICALS,INC./RIDGEFIELD-2009-BP-09977BP

PATIENT
  Sex: Male

DRUGS (13)
  1. FLOMAX [Suspect]
     Indication: BENIGN PROSTATIC HYPERPLASIA
     Dosage: 0.4 MG
     Route: 048
     Dates: start: 20070101
  2. DETROL LA [Concomitant]
     Indication: HYPERTONIC BLADDER
  3. NITROGLYCERIN [Concomitant]
     Indication: CHEST PAIN
  4. METOPROLOL TARTRATE [Concomitant]
     Indication: LABILE BLOOD PRESSURE
  5. ZOCOR [Concomitant]
     Indication: BLOOD CHOLESTEROL INCREASED
  6. OMEPRAZOLE [Concomitant]
     Indication: POST GASTRIC SURGERY SYNDROME
  7. TRAMADOL HCL [Concomitant]
     Indication: PAIN
  8. TRAMADOL HCL [Concomitant]
     Indication: OSTEOARTHRITIS
  9. MELATONIN [Concomitant]
     Indication: SLEEP DISORDER
  10. METAMUCIL [Concomitant]
     Indication: POST GASTRIC SURGERY SYNDROME
  11. RANITIDINE [Concomitant]
     Indication: GASTROOESOPHAGEAL REFLUX DISEASE
  12. NASONEX [Concomitant]
     Indication: MULTIPLE ALLERGIES
  13. CLARITIN [Concomitant]
     Indication: MULTIPLE ALLERGIES

REACTIONS (2)
  - EJACULATION FAILURE [None]
  - MYOCARDIAL INFARCTION [None]
